FAERS Safety Report 8387653-0 (Version None)
Quarter: 2012Q2

REPORT INFORMATION
  Report Type: 
  Country: None (occurrence: None)
  Receive Date: 20120525
  Receipt Date: 20120524
  Transmission Date: 20120825
  Serious: Yes (Death, Other)
  Sender: FDA-Public Use
  Company Number: PHHY2012US044589

PATIENT
  Age: 65 Year
  Sex: Male

DRUGS (4)
  1. CLOZAPINE [Suspect]
     Dosage: 100 MG, UNK
  2. DOCUSATE SODIUM [Concomitant]
     Dosage: 100 MG, BID
  3. OLANZAPINE [Concomitant]
     Dosage: 30 MG, PER DAY
  4. CLOZAPINE [Suspect]
     Indication: SCHIZOPHRENIA
     Dosage: 12.5 MG, UNK

REACTIONS (11)
  - NAUSEA [None]
  - TACHYCARDIA [None]
  - MALAISE [None]
  - TACHYPNOEA [None]
  - DECREASED APPETITE [None]
  - ILEUS PARALYTIC [None]
  - DIVERTICULUM [None]
  - ASPIRATION [None]
  - VOMITING [None]
  - HYPOTENSION [None]
  - DIARRHOEA [None]
